FAERS Safety Report 16786962 (Version 2)
Quarter: 2020Q1

REPORT INFORMATION
  Report Type: Spontaneous
  Country: US (occurrence: US)
  Receive Date: 20190909
  Receipt Date: 20200320
  Transmission Date: 20200409
  Serious: Yes (Other)
  Sender: FDA-Public Use
  Company Number: US-SA-2019SA244611

PATIENT
  Age: 62 Year
  Sex: Female
  Weight: 180 kg

DRUGS (4)
  1. TAXOTERE [Suspect]
     Active Substance: DOCETAXEL
     Dosage: UNK UNK, Q3W
     Dates: start: 20120830, end: 20120830
  2. HERCEPTIN [Concomitant]
     Active Substance: TRASTUZUMAB
     Indication: BREAST CANCER FEMALE
     Dosage: UNK
  3. PARAPLATIN [Concomitant]
     Active Substance: CARBOPLATIN
     Indication: BREAST CANCER FEMALE
     Dosage: UNK
  4. TAXOTERE [Suspect]
     Active Substance: DOCETAXEL
     Indication: BREAST CANCER FEMALE
     Dosage: UNK UNK, Q3W
     Route: 042
     Dates: start: 20120427, end: 20120427

REACTIONS (6)
  - Alopecia [Recovering/Resolving]
  - Pain [Unknown]
  - Anxiety [Unknown]
  - Emotional distress [Unknown]
  - Impaired quality of life [Unknown]
  - Psychological trauma [Unknown]

NARRATIVE: CASE EVENT DATE: 20120527
